FAERS Safety Report 26198667 (Version 1)
Quarter: 2025Q4

REPORT INFORMATION
  Report Type: Spontaneous
  Country: JP (occurrence: JP)
  Receive Date: 20251224
  Receipt Date: 20251224
  Transmission Date: 20260118
  Serious: Yes (Other)
  Sender: GENMAB
  Company Number: JP-GENMAB-2025-04213

PATIENT
  Age: 73 Year
  Sex: Male

DRUGS (2)
  1. EPKINLY [Suspect]
     Active Substance: EPCORITAMAB-BYSP
     Indication: Diffuse large B-cell lymphoma recurrent
     Dosage: UNK, ADMINISTERED FOR ONE MONTH
     Route: 065
  2. EPKINLY [Suspect]
     Active Substance: EPCORITAMAB-BYSP
     Dosage: UNK, ADMINISTRATION RESUMED AFTER CHASER THERAPY, ADMINISTERED FOR APPROXIMATELY ONE MONTH
     Route: 065

REACTIONS (2)
  - Large intestine perforation [Unknown]
  - Cytokine release syndrome [Unknown]
